FAERS Safety Report 15122452 (Version 1)
Quarter: 2018Q3

REPORT INFORMATION
  Report Type: Spontaneous
  Country: RU (occurrence: RU)
  Receive Date: 20180709
  Receipt Date: 20180709
  Transmission Date: 20181010
  Serious: Yes (Death)
  Sender: FDA-Public Use
  Company Number: PHHY2018RU034381

PATIENT
  Age: 73 Year
  Sex: Female

DRUGS (4)
  1. FLUDARABINE [Suspect]
     Active Substance: FLUDARABINE PHOSPHATE
     Indication: CHRONIC LYMPHOCYTIC LEUKAEMIA
     Dosage: 25 MG/M2, UNK (4 CYCLES)
     Route: 042
  2. RIXATHON [Suspect]
     Active Substance: RITUXIMAB
     Dosage: 500 MG/M2, UNK
     Route: 065
  3. RIXATHON [Suspect]
     Active Substance: RITUXIMAB
     Indication: CHRONIC LYMPHOCYTIC LEUKAEMIA
     Dosage: 375 MG/M2, UNK (IN THE FIRST DOSE) (4 CYCLES)
     Route: 065
  4. CYCLOPHOSPHAMIDE. [Suspect]
     Active Substance: CYCLOPHOSPHAMIDE
     Indication: CHRONIC LYMPHOCYTIC LEUKAEMIA
     Dosage: 200 MG/M2, UNK
     Route: 042

REACTIONS (3)
  - Infection [Fatal]
  - Hepatitis [Fatal]
  - Therapy non-responder [Fatal]
